FAERS Safety Report 17469930 (Version 1)
Quarter: 2020Q1

REPORT INFORMATION
  Report Type: Report from Study
  Country: CA (occurrence: CA)
  Receive Date: 20200227
  Receipt Date: 20200227
  Transmission Date: 20200409
  Serious: Yes (Other)
  Sender: FDA-Public Use
  Company Number: CA-JNJFOC-20200139141

PATIENT
  Age: 62 Year
  Sex: Female
  Weight: 49.1 kg

DRUGS (2)
  1. REMICADE [Suspect]
     Active Substance: INFLIXIMAB
     Indication: CROHN^S DISEASE
     Route: 042
     Dates: start: 20140910
  2. PANTOPRAZOLE [Concomitant]
     Active Substance: PANTOPRAZOLE

REACTIONS (4)
  - Pneumonia pseudomonal [Recovered/Resolved]
  - Off label use [Unknown]
  - Incorrect drug administration rate [Unknown]
  - Renal cancer [Unknown]

NARRATIVE: CASE EVENT DATE: 20140910
